FAERS Safety Report 10076725 (Version 1)
Quarter: 2014Q2

REPORT INFORMATION
  Report Type: Spontaneous
  Country: US (occurrence: None)
  Receive Date: 20140411
  Receipt Date: 20140411
  Transmission Date: 20141212
  Serious: Yes (Disabling)
  Sender: FDA-Public Use
  Company Number: None

PATIENT
  Age: 62 Year
  Sex: Female
  Weight: 68.95 kg

DRUGS (1)
  1. PILOCARPINE [Suspect]
     Indication: OFF LABEL USE
     Dosage: ONE TIME USE ONLY ONE DROP IN EACH EYE.
     Route: 047

REACTIONS (3)
  - Hypertension [None]
  - Blood pressure fluctuation [None]
  - Hypotension [None]
